FAERS Safety Report 21528611 (Version 1)
Quarter: 2022Q4

REPORT INFORMATION
  Report Type: Spontaneous
  Country: CN (occurrence: CN)
  Receive Date: 20221031
  Receipt Date: 20221031
  Transmission Date: 20230113
  Serious: Yes (Other)
  Sender: FDA-Public Use
  Company Number: CN-ELI_LILLY_AND_COMPANY-CN202210011410

PATIENT
  Age: 40 Year
  Sex: Male

DRUGS (1)
  1. CIALIS [Suspect]
     Active Substance: TADALAFIL
     Indication: Erectile dysfunction
     Dosage: 5 MG, UNKNOWN
     Route: 048

REACTIONS (4)
  - Erectile dysfunction [Unknown]
  - Poor quality sleep [Unknown]
  - Vision blurred [Unknown]
  - Erection increased [Unknown]
